FAERS Safety Report 19358307 (Version 3)
Quarter: 2021Q4

REPORT INFORMATION
  Report Type: Report from Study
  Country: KR (occurrence: KR)
  Receive Date: 20210531
  Receipt Date: 20211102
  Transmission Date: 20220303
  Serious: Yes (Other)
  Sender: FDA-Public Use
  Company Number: KR-KYOWAKIRIN-2021AKK009094

PATIENT
  Age: 49 Year
  Sex: Female

DRUGS (79)
  1. FILGRASTIM [Suspect]
     Active Substance: FILGRASTIM
     Indication: Product used for unknown indication
     Dosage: UNK UNK, QD
     Route: 065
     Dates: start: 20180614, end: 20180703
  2. FILGRASTIM [Suspect]
     Active Substance: FILGRASTIM
     Dosage: 150 UNK, QD
     Route: 065
     Dates: start: 20180619, end: 20180709
  3. RAMUCIRUMAB [Concomitant]
     Active Substance: RAMUCIRUMAB
     Indication: Product used for unknown indication
     Dosage: UNK, QD
     Dates: start: 20180530, end: 20180530
  4. RAMUCIRUMAB [Concomitant]
     Active Substance: RAMUCIRUMAB
     Dosage: UNK, QD
     Dates: start: 20180619, end: 20180619
  5. RAMUCIRUMAB [Concomitant]
     Active Substance: RAMUCIRUMAB
     Dosage: UNK, QD
     Dates: start: 20180710, end: 20180710
  6. RAMUCIRUMAB [Concomitant]
     Active Substance: RAMUCIRUMAB
     Dosage: UNK, QD
     Dates: start: 20180724, end: 20180724
  7. RAMUCIRUMAB [Concomitant]
     Active Substance: RAMUCIRUMAB
     Dosage: UNK, QD
     Dates: start: 20180807, end: 20180807
  8. RAMUCIRUMAB [Concomitant]
     Active Substance: RAMUCIRUMAB
     Dosage: UNK, QD
     Dates: start: 20180823, end: 20180823
  9. RAMUCIRUMAB [Concomitant]
     Active Substance: RAMUCIRUMAB
     Dosage: UNK, QD
     Dates: start: 20180904, end: 20180904
  10. RAMUCIRUMAB [Concomitant]
     Active Substance: RAMUCIRUMAB
     Dosage: UNK, QD
     Dates: start: 20180918, end: 20180918
  11. RAMUCIRUMAB [Concomitant]
     Active Substance: RAMUCIRUMAB
     Dosage: UNK, QD
     Dates: start: 20181002, end: 20181002
  12. RAMUCIRUMAB [Concomitant]
     Active Substance: RAMUCIRUMAB
     Dosage: UNK, QD
     Dates: start: 20181016, end: 20181016
  13. RAMUCIRUMAB [Concomitant]
     Active Substance: RAMUCIRUMAB
     Dosage: UNK, QD
     Dates: start: 20181030, end: 20181030
  14. RAMUCIRUMAB [Concomitant]
     Active Substance: RAMUCIRUMAB
     Dosage: UNK, QD
     Dates: start: 20181120, end: 20181120
  15. ACECLOFENAC [Concomitant]
     Active Substance: ACECLOFENAC
     Indication: Product used for unknown indication
     Dosage: 100 MG, QD
     Dates: start: 20180531
  16. CHLORPHENIRAMINE MALEATE [Concomitant]
     Active Substance: CHLORPHENIRAMINE MALEATE
     Indication: Product used for unknown indication
     Dosage: 4 MILLIGRAM, QD
     Dates: start: 20180530, end: 20180530
  17. CHLORPHENIRAMINE MALEATE [Concomitant]
     Active Substance: CHLORPHENIRAMINE MALEATE
     Dosage: 4 MILLIGRAM, QD
     Dates: start: 20180607, end: 20180607
  18. CHLORPHENIRAMINE MALEATE [Concomitant]
     Active Substance: CHLORPHENIRAMINE MALEATE
     Dosage: 4 MILLIGRAM, QD
     Dates: start: 20180619, end: 20180619
  19. CHLORPHENIRAMINE MALEATE [Concomitant]
     Active Substance: CHLORPHENIRAMINE MALEATE
     Dosage: 4 MILLIGRAM, QD
     Dates: start: 20180710, end: 20180710
  20. CHLORPHENIRAMINE MALEATE [Concomitant]
     Active Substance: CHLORPHENIRAMINE MALEATE
     Dosage: 4 MILLIGRAM, QD
     Dates: start: 20180717, end: 20180717
  21. CHLORPHENIRAMINE MALEATE [Concomitant]
     Active Substance: CHLORPHENIRAMINE MALEATE
     Dosage: 4 MILLIGRAM, QD
     Dates: start: 20180724, end: 20180724
  22. CHLORPHENIRAMINE MALEATE [Concomitant]
     Active Substance: CHLORPHENIRAMINE MALEATE
     Dosage: 4 MILLIGRAM, QD
     Dates: start: 20180807, end: 20180807
  23. CHLORPHENIRAMINE MALEATE [Concomitant]
     Active Substance: CHLORPHENIRAMINE MALEATE
     Dosage: 4 MILLIGRAM, QD
     Dates: start: 20180814, end: 20180814
  24. CHLORPHENIRAMINE MALEATE [Concomitant]
     Active Substance: CHLORPHENIRAMINE MALEATE
     Dosage: 4 MILLIGRAM, QD
     Dates: start: 20180823, end: 20180823
  25. CHLORPHENIRAMINE MALEATE [Concomitant]
     Active Substance: CHLORPHENIRAMINE MALEATE
     Dosage: 4 MILLIGRAM, QD
     Dates: start: 20180904, end: 20180904
  26. CHLORPHENIRAMINE MALEATE [Concomitant]
     Active Substance: CHLORPHENIRAMINE MALEATE
     Dosage: 4 MILLIGRAM, QD
     Dates: start: 20180911, end: 20180911
  27. CHLORPHENIRAMINE MALEATE [Concomitant]
     Active Substance: CHLORPHENIRAMINE MALEATE
     Dosage: 4 MILLIGRAM, QD
     Dates: start: 20180918, end: 20180918
  28. CHLORPHENIRAMINE MALEATE [Concomitant]
     Active Substance: CHLORPHENIRAMINE MALEATE
     Dosage: 4 MILLIGRAM, QD
     Dates: start: 20181002, end: 20181002
  29. CHLORPHENIRAMINE MALEATE [Concomitant]
     Active Substance: CHLORPHENIRAMINE MALEATE
     Dosage: 4 MILLIGRAM, QD
     Dates: start: 20181008, end: 20181008
  30. CHLORPHENIRAMINE MALEATE [Concomitant]
     Active Substance: CHLORPHENIRAMINE MALEATE
     Dosage: 4 MILLIGRAM, QD
     Dates: start: 20181016, end: 20181016
  31. CHLORPHENIRAMINE MALEATE [Concomitant]
     Active Substance: CHLORPHENIRAMINE MALEATE
     Dosage: 4 MILLIGRAM, QD
     Dates: start: 20181030, end: 20181030
  32. CHLORPHENIRAMINE MALEATE [Concomitant]
     Active Substance: CHLORPHENIRAMINE MALEATE
     Dosage: 4 MILLIGRAM, QD
     Dates: start: 20181114, end: 20181114
  33. CHLORPHENIRAMINE MALEATE [Concomitant]
     Active Substance: CHLORPHENIRAMINE MALEATE
     Dosage: 4 MILLIGRAM, QD
     Dates: start: 20181120, end: 20181120
  34. DEXAMETHASONE [Concomitant]
     Active Substance: DEXAMETHASONE
     Indication: Product used for unknown indication
     Dosage: 10 MILLIGRAM, QD
     Dates: start: 20180530, end: 20180530
  35. DEXAMETHASONE [Concomitant]
     Active Substance: DEXAMETHASONE
     Dosage: 10 MILLIGRAM, QD
     Dates: start: 20180607, end: 20180607
  36. DEXAMETHASONE [Concomitant]
     Active Substance: DEXAMETHASONE
     Dosage: 10 MILLIGRAM, QD
     Dates: start: 20180619, end: 20180619
  37. DEXAMETHASONE [Concomitant]
     Active Substance: DEXAMETHASONE
     Dosage: 10 MILLIGRAM, QD
     Dates: start: 20180710, end: 20180710
  38. DEXAMETHASONE [Concomitant]
     Active Substance: DEXAMETHASONE
     Dosage: 10 MILLIGRAM, QD
     Dates: start: 20180717, end: 20180717
  39. DEXAMETHASONE [Concomitant]
     Active Substance: DEXAMETHASONE
     Dosage: 10 MILLIGRAM, QD
     Dates: start: 20180724, end: 20180724
  40. DEXAMETHASONE [Concomitant]
     Active Substance: DEXAMETHASONE
     Dosage: 10 MILLIGRAM, QD
     Dates: start: 20180807, end: 20180807
  41. DEXAMETHASONE [Concomitant]
     Active Substance: DEXAMETHASONE
     Dosage: 10 MILLIGRAM, QD
     Dates: start: 20180814, end: 20180814
  42. DEXAMETHASONE [Concomitant]
     Active Substance: DEXAMETHASONE
     Dosage: 10 MILLIGRAM, QD
     Dates: start: 20180823, end: 20180823
  43. DEXAMETHASONE [Concomitant]
     Active Substance: DEXAMETHASONE
     Dosage: 10 MILLIGRAM, QD
     Dates: start: 20180904, end: 20180904
  44. DEXAMETHASONE [Concomitant]
     Active Substance: DEXAMETHASONE
     Dosage: 10 MILLIGRAM, QD
     Dates: start: 20180911, end: 20180911
  45. DEXAMETHASONE [Concomitant]
     Active Substance: DEXAMETHASONE
     Dosage: 10 MILLIGRAM, QD
     Dates: start: 20180918, end: 20180918
  46. DEXAMETHASONE [Concomitant]
     Active Substance: DEXAMETHASONE
     Dosage: 10 MILLIGRAM, QD
     Dates: start: 20181002, end: 20181002
  47. DEXAMETHASONE [Concomitant]
     Active Substance: DEXAMETHASONE
     Dosage: 10 MILLIGRAM, QD
     Dates: start: 20181008, end: 20181008
  48. DEXAMETHASONE [Concomitant]
     Active Substance: DEXAMETHASONE
     Dosage: 10 MILLIGRAM, QD
     Dates: start: 20181016, end: 20181016
  49. DEXAMETHASONE [Concomitant]
     Active Substance: DEXAMETHASONE
     Dosage: 10 MILLIGRAM, QD
     Dates: start: 20181030, end: 20181030
  50. DEXAMETHASONE [Concomitant]
     Active Substance: DEXAMETHASONE
     Dosage: 10 MILLIGRAM, QD
     Dates: start: 20181114, end: 20181114
  51. DEXAMETHASONE [Concomitant]
     Active Substance: DEXAMETHASONE
     Dosage: 10 MILLIGRAM, QD
     Dates: start: 20181120, end: 20181120
  52. DULOXETINE [Concomitant]
     Active Substance: DULOXETINE
     Indication: Product used for unknown indication
     Dosage: 30 MILLIGRAM, QD
     Dates: start: 20180724, end: 20181030
  53. DULOXETINE [Concomitant]
     Active Substance: DULOXETINE
     Dosage: 30 MILLIGRAM, QD
     Dates: start: 20181002
  54. FAMOTIDINE [Concomitant]
     Active Substance: FAMOTIDINE
     Indication: Product used for unknown indication
     Dosage: 20 MILLIGRAM, QD
     Dates: start: 20180530
  55. METOCLOPRAMIDE [Concomitant]
     Active Substance: METOCLOPRAMIDE
     Indication: Product used for unknown indication
     Dosage: 10 MILLIGRAM, QD
     Dates: start: 20180530
  56. PACLITAXEL [Concomitant]
     Active Substance: PACLITAXEL
     Indication: Product used for unknown indication
     Dosage: 64 UNK, QD
     Dates: start: 20180607, end: 20180607
  57. PACLITAXEL [Concomitant]
     Active Substance: PACLITAXEL
     Dosage: 64 UNK, QD
     Dates: start: 20180619, end: 20180619
  58. PACLITAXEL [Concomitant]
     Active Substance: PACLITAXEL
     Dosage: 64 UNK, QD
     Dates: start: 20180710, end: 20180710
  59. PACLITAXEL [Concomitant]
     Active Substance: PACLITAXEL
     Dosage: 64 UNK, QD
     Dates: start: 20180717, end: 20180717
  60. PACLITAXEL [Concomitant]
     Active Substance: PACLITAXEL
     Dosage: 64 UNK, QD
     Dates: start: 20180724, end: 20180724
  61. PACLITAXEL [Concomitant]
     Active Substance: PACLITAXEL
     Dosage: 64 UNK, QD
     Dates: start: 20180807, end: 20180807
  62. PACLITAXEL [Concomitant]
     Active Substance: PACLITAXEL
     Dosage: 64 UNK, QD
     Dates: start: 20180814, end: 20180814
  63. PACLITAXEL [Concomitant]
     Active Substance: PACLITAXEL
     Dosage: 64 UNK, QD
     Dates: start: 20180823, end: 20180823
  64. PACLITAXEL [Concomitant]
     Active Substance: PACLITAXEL
     Dosage: 64 UNK, QD
     Dates: start: 20180904, end: 20180904
  65. PACLITAXEL [Concomitant]
     Active Substance: PACLITAXEL
     Dosage: 64 UNK, QD
     Dates: start: 20180911, end: 20180911
  66. PACLITAXEL [Concomitant]
     Active Substance: PACLITAXEL
     Dosage: 64 UNK, QD
     Dates: start: 20180918, end: 20180918
  67. PACLITAXEL [Concomitant]
     Active Substance: PACLITAXEL
     Dosage: 64 UNK, QD
     Dates: start: 20181002, end: 20181002
  68. PACLITAXEL [Concomitant]
     Active Substance: PACLITAXEL
     Dosage: 64 UNK, QD
     Dates: start: 20181008, end: 20181008
  69. PACLITAXEL [Concomitant]
     Active Substance: PACLITAXEL
     Dosage: 64 UNK, QD
     Dates: start: 20181016, end: 20181016
  70. PACLITAXEL [Concomitant]
     Active Substance: PACLITAXEL
     Dosage: 64 UNK, QD
     Dates: start: 20181030, end: 20181030
  71. PACLITAXEL [Concomitant]
     Active Substance: PACLITAXEL
     Dosage: 64 UNK, QD
     Dates: start: 20181114, end: 20181114
  72. PACLITAXEL [Concomitant]
     Active Substance: PACLITAXEL
     Dosage: 64 UNK, QD
     Dates: start: 20181120, end: 20181120
  73. PACLITAXEL [Concomitant]
     Active Substance: PACLITAXEL
     Dosage: 80 UNK, QD
     Dates: start: 20180530, end: 20180530
  74. PREGABALIN [Concomitant]
     Active Substance: PREGABALIN
     Indication: Product used for unknown indication
     Dosage: 75 MILLIGRAM, QD
     Dates: start: 20180710, end: 20180717
  75. PREGABALIN [Concomitant]
     Active Substance: PREGABALIN
     Dosage: 150 MILLIGRAM, QD
     Dates: start: 20180717, end: 20181002
  76. PREGABALIN [Concomitant]
     Active Substance: PREGABALIN
     Dosage: 150 MILLIGRAM, QD
     Dates: start: 20181002
  77. PREGABALIN [Concomitant]
     Active Substance: PREGABALIN
     Dosage: 300 MILLIGRAM, QD
     Dates: start: 20181002
  78. SILYMARIN 100 [Concomitant]
     Indication: Product used for unknown indication
     Dosage: 140 MG, QD
     Dates: start: 20180424, end: 20180630
  79. URSODIOL [Concomitant]
     Active Substance: URSODIOL
     Indication: Product used for unknown indication
     Dosage: 200 MILLIGRAM, QD
     Dates: start: 20180424, end: 20180630

REACTIONS (8)
  - Neutropenia [Recovered/Resolved]
  - Myalgia [Recovered/Resolved]
  - Decreased appetite [Not Recovered/Not Resolved]
  - Dyspnoea [Not Recovered/Not Resolved]
  - Headache [Recovered/Resolved]
  - Nausea [Not Recovered/Not Resolved]
  - Haematuria [Recovered/Resolved]
  - Haematuria [Recovered/Resolved]

NARRATIVE: CASE EVENT DATE: 20180607
